FAERS Safety Report 10239671 (Version 1)
Quarter: 2014Q2

REPORT INFORMATION
  Report Type: Spontaneous
  Country: DE (occurrence: DE)
  Receive Date: 20140616
  Receipt Date: 20140616
  Transmission Date: 20141212
  Serious: Yes (Other)
  Sender: FDA-Public Use
  Company Number: DE-PFIZER INC-2014163637

PATIENT
  Age: 80 Year
  Sex: Female

DRUGS (1)
  1. TREVILOR RETARD [Suspect]
     Dosage: 75 MG SINCE ALREADY 10 YEARS
     Dates: start: 2004

REACTIONS (1)
  - Drug dependence [Unknown]
